FAERS Safety Report 16607785 (Version 1)
Quarter: 2019Q3

REPORT INFORMATION
  Report Type: Spontaneous
  Country: US (occurrence: US)
  Receive Date: 20190719
  Receipt Date: 20190719
  Transmission Date: 20191004
  Serious: Yes (Other)
  Sender: FDA-Public Use
  Company Number: None

PATIENT
  Age: 60 Year
  Sex: Male
  Weight: 148.95 kg

DRUGS (1)
  1. AIMOVIG [Suspect]
     Active Substance: ERENUMAB-AOOE
     Indication: MIGRAINE
     Dosage: ?          OTHER STRENGTH:TWO SHOTS;QUANTITY:2 INJECTION(S);OTHER FREQUENCY:MONTHLY;?
     Route: 030

REACTIONS (2)
  - Diarrhoea [None]
  - Abdominal pain upper [None]
